FAERS Safety Report 22127851 (Version 2)
Quarter: 2023Q2

REPORT INFORMATION
  Report Type: Spontaneous
  Country: DE (occurrence: DE)
  Receive Date: 20230323
  Receipt Date: 20230425
  Transmission Date: 20230722
  Serious: Yes (Other)
  Sender: FDA-Public Use
  Company Number: DE-ALKEM LABORATORIES LIMITED-DE-ALKEM-2023-02477

PATIENT
  Age: 29 Year
  Sex: Female

DRUGS (6)
  1. LACOSAMIDE [Suspect]
     Active Substance: LACOSAMIDE
     Indication: Generalised tonic-clonic seizure
     Dosage: 100 MILLIGRAM, QD (EVERY 1 DAY)
     Route: 048
  2. LACOSAMIDE [Suspect]
     Active Substance: LACOSAMIDE
     Dosage: 400 MILLIGRAM, QD (EVERY 1 DAY)
     Route: 048
  3. LEVETIRACETAM [Suspect]
     Active Substance: LEVETIRACETAM
     Indication: Generalised tonic-clonic seizure
     Dosage: 2000 MILLIGRAM, QD (EVERY 1 DAY) (FILM-COATED TABLET)
     Route: 048
  4. LEVETIRACETAM [Suspect]
     Active Substance: LEVETIRACETAM
     Dosage: 4000 MILLIGRAM, QD (EVERY 1 DAY) (FILM-COATED TABLET)
     Route: 054
  5. DEXAMETHASONE [Concomitant]
     Active Substance: DEXAMETHASONE
     Indication: Generalised tonic-clonic seizure
     Dosage: 8 MILLIGRAM, QD (EVERY 1 DAY)
     Route: 048
  6. MORPHINE [Concomitant]
     Active Substance: MORPHINE
     Indication: Headache
     Dosage: UNK
     Route: 058

REACTIONS (6)
  - Drug ineffective [Unknown]
  - Cognitive disorder [Unknown]
  - Dysphagia [Unknown]
  - Drug intolerance [Unknown]
  - Off label use [Unknown]
  - Treatment noncompliance [Unknown]
